FAERS Safety Report 11053789 (Version 2)
Quarter: 2015Q2

REPORT INFORMATION
  Report Type: Spontaneous
  Country: US (occurrence: US)
  Receive Date: 20150421
  Receipt Date: 20150525
  Transmission Date: 20150821
  Serious: No
  Sender: FDA-Public Use
  Company Number: US-JNJFOC-20130916746

PATIENT
  Age: 18 Year
  Sex: Male
  Weight: 108.86 kg

DRUGS (2)
  1. RISPERDAL [Suspect]
     Active Substance: RISPERIDONE
     Indication: SOLILOQUY
     Route: 048
     Dates: start: 201306, end: 201308
  2. RISPERDAL CONSTA [Suspect]
     Active Substance: RISPERIDONE
     Indication: SOLILOQUY
     Route: 030
     Dates: start: 20130901

REACTIONS (5)
  - Emotional distress [Recovered/Resolved]
  - Treatment noncompliance [Unknown]
  - Abnormal behaviour [Recovered/Resolved]
  - Imprisonment [Not Recovered/Not Resolved]
  - Off label use [Unknown]

NARRATIVE: CASE EVENT DATE: 201309
